FAERS Safety Report 8344104-X (Version None)
Quarter: 2012Q2

REPORT INFORMATION
  Report Type: 
  Country: None (occurrence: None)
  Receive Date: 20120504
  Receipt Date: 20120420
  Transmission Date: 20120825
  Serious: No
  Sender: FDA-Public Use
  Company Number: JP-2012-14547

PATIENT
  Age: 64 Year
  Sex: Male

DRUGS (2)
  1. CILOSTAZOL [Suspect]
     Indication: THROMBOTIC CEREBRAL INFARCTION
     Dosage: UNK, ORAL
     Route: 048
  2. ASPIRIN [Concomitant]

REACTIONS (7)
  - FACTOR VIII INHIBITION [None]
  - ACTIVATED PARTIAL THROMBOPLASTIN TIME PROLONGED [None]
  - ACQUIRED HAEMOPHILIA [None]
  - BONE SWELLING [None]
  - ANAEMIA [None]
  - MUSCLE HAEMORRHAGE [None]
  - FACTOR VIII DEFICIENCY [None]
